FAERS Safety Report 9154217 (Version 2)
Quarter: 2013Q1

REPORT INFORMATION
  Report Type: Spontaneous
  Country: IL (occurrence: None)
  Receive Date: 20130207
  Receipt Date: 20130226
  Transmission Date: 20140127
  Serious: Yes (Hospitalization)
  Sender: FDA-Public Use
  Company Number: ACO_34077_2013

PATIENT
  Age: 50 Year
  Sex: Male

DRUGS (2)
  1. FAMPYRA (DALFAMPRIDINE) TABLET, 10MG [Suspect]
     Indication: GAIT DISTURBANCE
     Dates: end: 20130123
  2. TYSABRI (NATALIZUMAB) [Concomitant]

REACTIONS (3)
  - Convulsion [None]
  - Confusional state [None]
  - Cognitive disorder [None]
